FAERS Safety Report 9678732 (Version 1)
Quarter: 2013Q4

REPORT INFORMATION
  Report Type: Spontaneous
  Country: US (occurrence: US)
  Receive Date: 20131108
  Receipt Date: 20131108
  Transmission Date: 20140711
  Serious: No
  Sender: FDA-Public Use
  Company Number: US-009507513-1311USA002718

PATIENT
  Age: 10 Year
  Sex: Female
  Weight: 52.15 kg

DRUGS (1)
  1. CLARITIN ORAL SOLUTION [Suspect]
     Indication: HYPERSENSITIVITY
     Dosage: 10 MG, PRN
     Route: 048

REACTIONS (1)
  - Overdose [Unknown]
